FAERS Safety Report 8997952 (Version 1)
Quarter: 2013Q1

REPORT INFORMATION
  Report Type: Spontaneous
  Country: GB (occurrence: GB)
  Receive Date: 20130104
  Receipt Date: 20130104
  Transmission Date: 20140127
  Serious: Yes (Hospitalization)
  Sender: FDA-Public Use
  Company Number: GB-BANPHARM-20120502

PATIENT
  Age: 71 Year
  Sex: Male

DRUGS (8)
  1. IBUPROFEN UNKNOWN PRODUCT [Suspect]
     Dosage: 400 MG, QD,
     Dates: start: 2000, end: 20100703
  2. ASPIRIN [Suspect]
     Dates: start: 1997, end: 20100703
  3. PLAVIX [Suspect]
     Dosage: 75 MG, QD
     Dates: start: 200910, end: 20100703
  4. ALLOPURINOL [Concomitant]
     Dosage: 300 MG,
     Dates: start: 1970
  5. AMLODIPINE [Concomitant]
     Dosage: 10 MG,
     Dates: start: 20091031
  6. ATORVASTATIN [Concomitant]
     Dosage: 40 MG,
     Dates: start: 20091130
  7. DALCETRAPIB [Concomitant]
     Dates: start: 20100114, end: 20100703
  8. LOPRESSOR [Concomitant]
     Dosage: 75 MG,
     Dates: start: 20091030

REACTIONS (1)
  - Gastrointestinal haemorrhage [Recovered/Resolved]
